FAERS Safety Report 21189763 (Version 9)
Quarter: 2025Q4

REPORT INFORMATION
  Report Type: Spontaneous
  Country: US (occurrence: US)
  Receive Date: 20220809
  Receipt Date: 20251209
  Transmission Date: 20260118
  Serious: Yes (Other)
  Sender: PFIZER
  Company Number: US-PFIZER INC-PV202200038933

PATIENT
  Age: 70 Year
  Sex: Female
  Weight: 108.4 kg

DRUGS (10)
  1. IBRANCE [Suspect]
     Active Substance: PALBOCICLIB
     Indication: Bone cancer metastatic
     Dosage: 125 MG DAY 1-21 Q 28
     Dates: start: 201801
  2. IBRANCE [Suspect]
     Active Substance: PALBOCICLIB
     Indication: Lung cancer metastatic
     Dosage: UNK
     Dates: start: 201803
  3. IBRANCE [Suspect]
     Active Substance: PALBOCICLIB
     Indication: Breast cancer stage IV
     Dosage: 100 MG PO (PER ORAL) DAY 1-21 EVERY 28 DAYS
     Route: 048
     Dates: start: 202104
  4. IBRANCE [Suspect]
     Active Substance: PALBOCICLIB
     Indication: Breast cancer female
     Dosage: 75 MG/DAY -1-21 EVERY 28 DAYS
     Route: 048
     Dates: start: 20210603
  5. IBRANCE [Suspect]
     Active Substance: PALBOCICLIB
     Dosage: 75 MG/DAY 1-21 EVERY 28 DAYS
     Route: 048
     Dates: start: 202108
  6. IBRANCE [Suspect]
     Active Substance: PALBOCICLIB
     Dosage: UNK
     Dates: start: 20250122
  7. IBRANCE [Suspect]
     Active Substance: PALBOCICLIB
     Dosage: TOOK 4 WEEK ON IBRANCE
  8. LETROZOLE [Concomitant]
     Active Substance: LETROZOLE
     Dosage: UNK UNK, DAILY
     Dates: start: 20210603
  9. ARANESP [Concomitant]
     Active Substance: DARBEPOETIN ALFA
     Dosage: 300 UG EVERY 2 WKS
  10. PROCRIT [Concomitant]
     Active Substance: ERYTHROPOIETIN
     Dosage: 40000 IU

REACTIONS (17)
  - Haemoglobin decreased [Unknown]
  - Gastrointestinal haemorrhage [Unknown]
  - Anaemia [Unknown]
  - Cataract [Unknown]
  - Iron deficiency anaemia [Unknown]
  - Haematochezia [Unknown]
  - Visual impairment [Unknown]
  - Renal disorder [Unknown]
  - Weight increased [Unknown]
  - Blood cholesterol increased [Unknown]
  - Tumour marker increased [Unknown]
  - White blood cell count decreased [Recovered/Resolved]
  - Overweight [Unknown]
  - Fatigue [Unknown]
  - Palpitations [Unknown]
  - Inappropriate schedule of product administration [Unknown]
  - Herpes zoster [Not Recovered/Not Resolved]

NARRATIVE: CASE EVENT DATE: 20210101
